FAERS Safety Report 15844457 (Version 1)
Quarter: 2019Q1

REPORT INFORMATION
  Report Type: Report from Study
  Country: US (occurrence: US)
  Receive Date: 20190118
  Receipt Date: 20190118
  Transmission Date: 20190417
  Serious: Yes (Death, Hospitalization)
  Sender: FDA-Public Use
  Company Number: US-ACTELION-A-US2019-184999

PATIENT
  Age: 69 Year
  Sex: Female
  Weight: 47.62 kg

DRUGS (3)
  1. ADCIRCA [Concomitant]
     Active Substance: TADALAFIL
  2. VELETRI [Suspect]
     Active Substance: EPOPROSTENOL
     Indication: PULMONARY ARTERIAL HYPERTENSION
     Dosage: 100 NG/KG, PER MIN
     Route: 042
  3. LETAIRIS [Concomitant]
     Active Substance: AMBRISENTAN

REACTIONS (3)
  - Pulmonary arterial hypertension [Fatal]
  - Suicide attempt [Unknown]
  - Hospice care [Unknown]

NARRATIVE: CASE EVENT DATE: 20190107
